FAERS Safety Report 6643382-2 (Version None)
Quarter: 2010Q1

REPORT INFORMATION
  Report Type: 
  Country: None (occurrence: None)
  Receive Date: 20100319
  Receipt Date: 20100311
  Transmission Date: 20100710
  Serious: Yes (Other)
  Sender: FDA-Public Use
  Company Number: GXKR2010ES02955

PATIENT
  Age: 72 Year
  Sex: Male

DRUGS (2)
  1. LINEZOLID [Interacting]
     Indication: NOSOCOMIAL INFECTION
     Dosage: 600 MG, Q12H
     Route: 065
  2. MIRTAZAPINE [Suspect]
     Indication: MOOD SWINGS
     Dosage: 30 MG/DAY
     Route: 065

REACTIONS (7)
  - CLONUS [None]
  - CONFUSIONAL STATE [None]
  - DRUG INTERACTION [None]
  - INSOMNIA [None]
  - MYOCLONUS [None]
  - SEROTONIN SYNDROME [None]
  - SINUS TACHYCARDIA [None]
